FAERS Safety Report 9994756 (Version 1)
Quarter: 2014Q1

REPORT INFORMATION
  Report Type: Spontaneous
  Country: US (occurrence: None)
  Receive Date: 20140307
  Receipt Date: 20140307
  Transmission Date: 20141002
  Serious: Yes (Life-Threatening, Other)
  Sender: FDA-Public Use
  Company Number: None

PATIENT
  Age: 18 Year
  Sex: Female
  Weight: 79.38 kg

DRUGS (5)
  1. SYNTHROID [Suspect]
     Indication: THYROID DISORDER
     Dosage: 175 MG 1 PILL DAILY 4DAYS A WEEK
     Route: 048
     Dates: start: 2003
  2. VITAMIN D [Concomitant]
  3. SYNTHROID [Concomitant]
  4. B COMPLEX [Concomitant]
  5. CALCIUM [Concomitant]

REACTIONS (6)
  - Alopecia [None]
  - Dyspnoea [None]
  - Memory impairment [None]
  - Bone loss [None]
  - Hypotonia [None]
  - Product substitution issue [None]
